FAERS Safety Report 7956493-6 (Version None)
Quarter: 2011Q4

REPORT INFORMATION
  Report Type: 
  Country: None (occurrence: None)
  Receive Date: 20111201
  Receipt Date: 20111116
  Transmission Date: 20120403
  Serious: Yes (Other)
  Sender: FDA-Public Use
  Company Number: 2011AP002719

PATIENT
  Age: 47 Year
  Sex: Female

DRUGS (7)
  1. LANSOPRAZOLE [Concomitant]
  2. CIPROFLOXACIN [Concomitant]
  3. PHENOXYMETHYLPENICILLIN (PHENOXYMETHYLPENICILLNI) [Concomitant]
  4. ESTRADIOL [Concomitant]
  5. RAMIPRIL [Suspect]
     Dates: start: 20111107
  6. LEVOTHYROXINE SODIUM [Concomitant]
  7. FLOXACILLIN SODIUM [Concomitant]

REACTIONS (3)
  - ARTHRALGIA [None]
  - CONDITION AGGRAVATED [None]
  - NAUSEA [None]
